FAERS Safety Report 10230938 (Version 1)
Quarter: 2014Q2

REPORT INFORMATION
  Report Type: Spontaneous
  Country: BR (occurrence: BR)
  Receive Date: 20140611
  Receipt Date: 20140611
  Transmission Date: 20141212
  Serious: Yes (Other)
  Sender: FDA-Public Use
  Company Number: BR-PFIZER INC-2014156897

PATIENT
  Age: 60 Year
  Sex: Female
  Weight: 108 kg

DRUGS (4)
  1. PRISTIQ [Suspect]
     Indication: DEPRESSION
     Dosage: 50 MG, DAILY
     Route: 048
     Dates: start: 20140521
  2. ALPRAZOLAM [Suspect]
     Indication: DEPRESSION
     Dosage: UNSPECIFIED DOSE AT 3 TIMES
     Dates: start: 2010
  3. ALPRAZOLAM [Suspect]
     Indication: ANXIETY
  4. NAPRIX D [Concomitant]
     Indication: BLOOD PRESSURE
     Dosage: 1 DF DAILY
     Dates: start: 2010

REACTIONS (5)
  - Suicidal ideation [Unknown]
  - Tachycardia [Not Recovered/Not Resolved]
  - Anxiety [Unknown]
  - Asthenia [Not Recovered/Not Resolved]
  - Drug ineffective [Not Recovered/Not Resolved]
